FAERS Safety Report 9252596 (Version 2)
Quarter: 2013Q2

REPORT INFORMATION
  Report Type: Spontaneous
  Country: RO (occurrence: RO)
  Receive Date: 20130424
  Receipt Date: 20130503
  Transmission Date: 20140414
  Serious: Yes (Life-Threatening, Other)
  Sender: FDA-Public Use
  Company Number: RO-ASTRAZENECA-2013SE25457

PATIENT
  Age: 19 Year
  Sex: Male

DRUGS (1)
  1. LIDOCAINE [Suspect]

REACTIONS (1)
  - Anaphylactic reaction [Unknown]
